FAERS Safety Report 6113776-2 (Version None)
Quarter: 2009Q1

REPORT INFORMATION
  Report Type: 
  Country: None (occurrence: None)
  Receive Date: 20090312
  Receipt Date: 20090310
  Transmission Date: 20090719
  Serious: Yes (Other)
  Sender: FDA-Public Use
  Company Number: US-ROXANE LABORATORIES, INC.-2009-RO-00230RO

PATIENT
  Sex: Male

DRUGS (3)
  1. HYDROMORPHONE HCL [Suspect]
  2. DILAUDID [Suspect]
     Indication: MALAISE
     Dosage: 6MG
  3. DILAUDID [Suspect]
     Indication: ABDOMINAL DISCOMFORT

REACTIONS (2)
  - DRUG INEFFECTIVE [None]
  - GASTRIC CANCER [None]
